FAERS Safety Report 19844262 (Version 1)
Quarter: 2021Q3

REPORT INFORMATION
  Report Type: Spontaneous
  Country: CN (occurrence: CN)
  Receive Date: 20210916
  Receipt Date: 20210916
  Transmission Date: 20211014
  Serious: Yes (Other)
  Sender: FDA-Public Use
  Company Number: CN-PFIZER INC-202101153847

PATIENT
  Age: 3 Year
  Sex: Male
  Weight: 11.6 kg

DRUGS (4)
  1. ZITHROMAX [Suspect]
     Active Substance: AZITHROMYCIN DIHYDRATE
     Indication: PNEUMONIA
     Dosage: 0.12 G, 1X/DAY
     Route: 048
     Dates: start: 20210818, end: 20210820
  2. YI TAN JING [Suspect]
     Active Substance: AMBROXOL HYDROCHLORIDE\CLENBUTEROL
     Indication: PNEUMONIA
     Dosage: 7.5 ML, 2X/DAY
     Route: 048
     Dates: start: 20210818, end: 20210825
  3. ROCEPHIN [Suspect]
     Active Substance: CEFTRIAXONE SODIUM
     Indication: PNEUMONIA
     Dosage: 0.6 G, 1X/DAY
     Route: 041
     Dates: start: 20210820, end: 20210825
  4. SODIUM CHLORIDE. [Concomitant]
     Active Substance: SODIUM CHLORIDE
     Indication: VEHICLE SOLUTION USE
     Dosage: 50 ML, 1X/DAY
     Route: 041
     Dates: start: 20210820, end: 20210825

REACTIONS (3)
  - Eyelid oedema [Recovered/Resolved]
  - Rash [Recovered/Resolved]
  - Drug hypersensitivity [Recovered/Resolved]

NARRATIVE: CASE EVENT DATE: 20210824
